APPROVED DRUG PRODUCT: CETIRIZINE HYDROCHLORIDE ALLERGY
Active Ingredient: CETIRIZINE HYDROCHLORIDE
Strength: 10MG
Dosage Form/Route: TABLET, ORALLY DISINTEGRATING;ORAL
Application: A205490 | Product #001
Applicant: PERRIGO R AND D CO
Approved: Sep 2, 2015 | RLD: No | RS: No | Type: OTC